FAERS Safety Report 5804975-5 (Version None)
Quarter: 2008Q3

REPORT INFORMATION
  Report Type: 
  Country: None (occurrence: None)
  Receive Date: 20080709
  Receipt Date: 20080704
  Transmission Date: 20090109
  Serious: Yes (Death, Hospitalization)
  Sender: FDA-Public Use
  Company Number: ZA-PFIZER INC-2008051781

PATIENT
  Sex: Female
  Weight: 33 kg

DRUGS (10)
  1. IRINOTECAN HCL [Suspect]
     Indication: COLORECTAL CANCER
     Route: 042
  2. BLINDED SU11248 (SU011248) [Suspect]
     Indication: COLORECTAL CANCER
     Dosage: DAILY DOSE:25MG-FREQ:DAILY
     Route: 048
  3. FLUOROURACIL [Suspect]
     Indication: COLORECTAL CANCER
     Route: 042
  4. FLUOROURACIL [Suspect]
     Route: 042
  5. LEUCOVORIN CALCIUM [Suspect]
     Indication: COLORECTAL CANCER
     Route: 042
  6. HYDROCHLOROTHIAZIDE [Concomitant]
     Indication: HYPERTENSION
     Dosage: DAILY DOSE:25MG-FREQ:DAILY
  7. PERINDOPRIL ERBUMINE [Concomitant]
     Indication: HYPERTENSION
     Dosage: DAILY DOSE:4MG-FREQ:DAILY
  8. OMEPRAZOLE [Concomitant]
     Indication: GASTRITIS
     Dosage: DAILY DOSE:20MG-FREQ:DAILY
  9. LOPERAMIDE HCL [Concomitant]
     Indication: DIARRHOEA
     Dosage: DAILY DOSE:2MG-FREQ:AS NEEDED
  10. SYNAP FORTE [Concomitant]
     Indication: PAIN
     Dosage: FREQ:AS NEEDED

REACTIONS (1)
  - DEHYDRATION [None]
